FAERS Safety Report 4560716-3 (Version None)
Quarter: 2005Q1

REPORT INFORMATION
  Report Type: 
  Country: None (occurrence: None)
  Receive Date: 20050126
  Receipt Date: 20050113
  Transmission Date: 20050727
  Serious: Yes (Other)
  Sender: FDA-Public Use
  Company Number: US-JNJFOC-20040404311

PATIENT
  Sex: Female
  Weight: 73.94 kg

DRUGS (6)
  1. REMICADE [Suspect]
     Route: 042
  2. REMICADE [Suspect]
     Route: 042
  3. REMICADE [Suspect]
     Route: 042
  4. REMICADE [Suspect]
     Indication: RHEUMATOID ARTHRITIS
     Route: 042
  5. ISONIAZID [Suspect]
     Indication: DRUG USE FOR UNKNOWN INDICATION
  6. METHOTREXATE [Concomitant]

REACTIONS (5)
  - DIARRHOEA [None]
  - LIVER FUNCTION TEST ABNORMAL [None]
  - PLATELET COUNT INCREASED [None]
  - PSEUDOMONAS INFECTION [None]
  - TUBERCULOSIS [None]
